FAERS Safety Report 9084027 (Version 1)
Quarter: 2013Q1

REPORT INFORMATION
  Report Type: Report from Study
  Country: US (occurrence: US)
  Receive Date: 20130129
  Receipt Date: 20130129
  Transmission Date: 20140127
  Serious: No
  Sender: FDA-Public Use
  Company Number: US-ABBOTT-12P-163-0949420-00

PATIENT
  Age: 55 Year
  Sex: Female

DRUGS (8)
  1. HUMIRA 40 MG/0.8 ML PEN [Suspect]
     Indication: RHEUMATOID ARTHRITIS
     Dates: start: 20111001
  2. METHOTREXATE [Concomitant]
     Indication: ARTHRITIS
     Dosage: 10 TABLETS EVERY TUESDAY
  3. PREDNISONE [Concomitant]
     Indication: ARTHRITIS
     Dosage: OCCASIONAL
  4. LISINOPRIL [Concomitant]
     Indication: HYPERTENSION
     Dosage: EVERY DAY
  5. HYDROCHLOROTHIAZIDE [Concomitant]
     Indication: PRODUCT USED FOR UNKNOWN INDICATION
  6. LOVASTATIN [Concomitant]
     Indication: BLOOD CHOLESTEROL INCREASED
     Dosage: ONE AT NIGHT
  7. HYDROXYCHLOROQUINE [Concomitant]
     Indication: RHEUMATOID ARTHRITIS
  8. ASPIRIN [Concomitant]
     Indication: PROPHYLAXIS

REACTIONS (1)
  - Muscle spasms [Recovered/Resolved]
